FAERS Safety Report 19553291 (Version 51)
Quarter: 2025Q2

REPORT INFORMATION
  Report Type: Spontaneous
  Country: GB (occurrence: GB)
  Receive Date: 20210714
  Receipt Date: 20250604
  Transmission Date: 20250717
  Serious: Yes (Hospitalization, Other)
  Sender: NOVARTIS
  Company Number: GB-PFIZER INC-2019511224

PATIENT
  Age: 68 Year
  Sex: Female
  Weight: 92 kg

DRUGS (179)
  1. METHOTREXATE [Suspect]
     Active Substance: METHOTREXATE
     Indication: Rheumatoid arthritis
     Dosage: 17.5 MG, QW
     Route: 065
     Dates: start: 20100917
  2. METHOTREXATE [Suspect]
     Active Substance: METHOTREXATE
     Dosage: 17.5 MG, QW
     Route: 065
     Dates: start: 20100917
  3. METHOTREXATE [Suspect]
     Active Substance: METHOTREXATE
     Dosage: 18 MG, QW (AT 17.5, WEEKLY)
     Route: 065
     Dates: start: 20100917
  4. METHOTREXATE [Suspect]
     Active Substance: METHOTREXATE
     Dosage: 18 MG, QW
     Route: 065
  5. METHOTREXATE [Suspect]
     Active Substance: METHOTREXATE
     Dosage: UNK, QW
     Route: 065
  6. OMEPRAZOLE [Suspect]
     Active Substance: OMEPRAZOLE
     Indication: Abdominal discomfort
     Dosage: 20 MG, QH (480 MILLIGRAM DAILY; 20 MG, 2XDAY)
     Route: 065
     Dates: start: 20100917
  7. OMEPRAZOLE [Suspect]
     Active Substance: OMEPRAZOLE
     Indication: Gastrointestinal disorder
     Dosage: 20 MG, QD
     Route: 065
     Dates: start: 20100917
  8. OMEPRAZOLE [Suspect]
     Active Substance: OMEPRAZOLE
     Indication: Product used for unknown indication
     Dosage: 20 MG, QD
     Route: 065
     Dates: start: 20100917
  9. OMEPRAZOLE [Suspect]
     Active Substance: OMEPRAZOLE
     Dosage: 20 MG, QD
     Route: 065
     Dates: start: 20200917
  10. OMEPRAZOLE [Suspect]
     Active Substance: OMEPRAZOLE
     Dosage: 20 MG, QD
     Route: 065
     Dates: start: 20200917
  11. OMEPRAZOLE [Suspect]
     Active Substance: OMEPRAZOLE
     Dosage: 80 MG, QD
     Route: 065
  12. OMEPRAZOLE [Suspect]
     Active Substance: OMEPRAZOLE
     Dosage: 20 MG, QH (480 MILLIGRAM DAILY; 20 MG, 2X/DAY)
     Route: 065
  13. OMEPRAZOLE [Suspect]
     Active Substance: OMEPRAZOLE
     Dosage: 20 MG, BID
     Route: 065
  14. OMEPRAZOLE [Suspect]
     Active Substance: OMEPRAZOLE
     Dosage: 80 MG, QD
     Route: 065
     Dates: start: 20200917
  15. OMEPRAZOLE [Suspect]
     Active Substance: OMEPRAZOLE
     Route: 065
  16. OMEPRAZOLE [Suspect]
     Active Substance: OMEPRAZOLE
     Dosage: 20 MG, BID
     Route: 065
  17. OMEPRAZOLE [Suspect]
     Active Substance: OMEPRAZOLE
     Route: 065
  18. OMEPRAZOLE [Suspect]
     Active Substance: OMEPRAZOLE
     Dosage: 20 MG, QH (480 MILLIGRAM DAILY; 20 MG, 2X/DAY)
     Route: 065
  19. CIPROFLOXACIN HYDROCHLORIDE [Suspect]
     Active Substance: CIPROFLOXACIN HYDROCHLORIDE
     Indication: Rheumatoid arthritis
     Dosage: 1000 MG, QD
     Route: 065
     Dates: start: 20100917
  20. CIPROFLOXACIN HYDROCHLORIDE [Suspect]
     Active Substance: CIPROFLOXACIN HYDROCHLORIDE
     Indication: Depression
     Dosage: 1000 MG, QD
     Route: 065
     Dates: start: 20200917
  21. CIPROFLOXACIN HYDROCHLORIDE [Suspect]
     Active Substance: CIPROFLOXACIN HYDROCHLORIDE
     Indication: Abdominal discomfort
     Route: 065
  22. CARBAMAZEPINE [Suspect]
     Active Substance: CARBAMAZEPINE
     Indication: Depression
     Dosage: 750 MG, QD (TABLET)
     Route: 065
     Dates: start: 20100917
  23. CARBAMAZEPINE [Suspect]
     Active Substance: CARBAMAZEPINE
     Indication: Product used for unknown indication
     Dosage: 750 MG, QD
     Route: 065
     Dates: start: 20200917
  24. CARBAMAZEPINE [Suspect]
     Active Substance: CARBAMAZEPINE
     Dosage: 750 MG, QD
     Route: 065
     Dates: start: 20210917
  25. CARBAMAZEPINE [Suspect]
     Active Substance: CARBAMAZEPINE
     Dosage: 1000 MG, QD
     Route: 065
     Dates: start: 20100917
  26. CARBAMAZEPINE [Suspect]
     Active Substance: CARBAMAZEPINE
     Dosage: 750 MG, QD
     Route: 065
  27. CARBAMAZEPINE [Suspect]
     Active Substance: CARBAMAZEPINE
     Route: 065
  28. ZINC [Suspect]
     Active Substance: ZINC
     Indication: Abdominal discomfort
     Route: 065
  29. ZINC [Suspect]
     Active Substance: ZINC
     Indication: Depression
     Dosage: 750 MG, QD ((DIETHYLDITHIOCARBAMATE))
     Route: 065
  30. ZINC [Suspect]
     Active Substance: ZINC
     Indication: Product used for unknown indication
     Route: 065
  31. ZINC [Suspect]
     Active Substance: ZINC
     Route: 065
  32. ZINC [Suspect]
     Active Substance: ZINC
     Route: 065
  33. ZINC [Suspect]
     Active Substance: ZINC
     Route: 065
  34. ZINC [Suspect]
     Active Substance: ZINC
     Dosage: 750 MG, QD ((DIETHYLDITHIOCARBAMATE))
     Route: 065
  35. ZINC [Suspect]
     Active Substance: ZINC
     Route: 065
  36. ZINC [Suspect]
     Active Substance: ZINC
     Route: 065
  37. ZINC [Suspect]
     Active Substance: ZINC
     Route: 065
  38. AMINOPHYLLINE [Suspect]
     Active Substance: AMINOPHYLLINE
     Indication: Product used for unknown indication
     Dosage: 400 MG, QD
     Route: 065
     Dates: start: 20100917
  39. AMINOPHYLLINE [Suspect]
     Active Substance: AMINOPHYLLINE
     Dosage: 400 MG, QD
     Route: 065
     Dates: start: 20200917
  40. AMINOPHYLLINE [Suspect]
     Active Substance: AMINOPHYLLINE
     Dosage: 400 MG, QD
     Route: 065
  41. THEOPHYLLINE [Suspect]
     Active Substance: THEOPHYLLINE
     Indication: Depression
     Dosage: 750 MG, QD
     Route: 065
  42. THEOPHYLLINE [Suspect]
     Active Substance: THEOPHYLLINE
     Indication: Abdominal discomfort
     Dosage: 750 MG, QD (ONCE A DAY)
     Route: 065
  43. THEOPHYLLINE [Suspect]
     Active Substance: THEOPHYLLINE
     Dosage: 750 MG, QD (ONCE A DAY)
     Route: 065
  44. AMOXICILLIN [Suspect]
     Active Substance: AMOXICILLIN
     Indication: Abdominal discomfort
     Route: 065
  45. AMOXICILLIN [Suspect]
     Active Substance: AMOXICILLIN
     Indication: Product used for unknown indication
     Route: 065
     Dates: start: 20210904
  46. AMOXICILLIN [Suspect]
     Active Substance: AMOXICILLIN
     Route: 065
     Dates: start: 20210904
  47. AMOXICILLIN [Suspect]
     Active Substance: AMOXICILLIN
     Route: 065
  48. IRBESARTAN [Suspect]
     Active Substance: IRBESARTAN
     Indication: Abdominal discomfort
     Dosage: 150 G, DAILY
     Route: 065
  49. ENBREL [Suspect]
     Active Substance: ETANERCEPT
     Indication: Rheumatoid arthritis
     Dosage: 50 MG, WEEKLY (50 MG, QW, MYCLIC PEN)
     Route: 058
  50. ENBREL [Suspect]
     Active Substance: ETANERCEPT
     Dosage: 50 MILLIGRAM WEEKLY (50 MG, QW, MYCLIC PEN)
     Route: 058
     Dates: start: 20100917
  51. ENBREL [Suspect]
     Active Substance: ETANERCEPT
     Route: 065
  52. ENBREL [Suspect]
     Active Substance: ETANERCEPT
     Route: 065
  53. CIPROFLOXACIN HYDROCHLORIDE [Suspect]
     Active Substance: CIPROFLOXACIN HYDROCHLORIDE
     Indication: Product used for unknown indication
     Dosage: 1000 MG, DAILY
     Route: 065
  54. CIPROFLOXACIN HYDROCHLORIDE [Suspect]
     Active Substance: CIPROFLOXACIN HYDROCHLORIDE
     Indication: Rheumatoid arthritis
     Dosage: 1000 MG, DAILY
     Route: 065
     Dates: start: 20100917
  55. CIPROFLOXACIN HYDROCHLORIDE [Suspect]
     Active Substance: CIPROFLOXACIN HYDROCHLORIDE
     Indication: Abdominal discomfort
  56. CIPROFLOXACIN HYDROCHLORIDE [Suspect]
     Active Substance: CIPROFLOXACIN HYDROCHLORIDE
     Indication: Depression
  57. PHYLLOCONTIN [Suspect]
     Active Substance: AMINOPHYLLINE
     Indication: Product used for unknown indication
     Dosage: 400 MG, DAILY
     Route: 065
  58. PHYLLOCONTIN [Suspect]
     Active Substance: AMINOPHYLLINE
     Dosage: 400 MG, DAILY
     Route: 065
     Dates: start: 20100917
  59. PHYLLOCONTIN [Suspect]
     Active Substance: AMINOPHYLLINE
     Indication: Product used for unknown indication
     Dosage: 400 MG, QD
     Route: 065
     Dates: start: 20100917
  60. PHYLLOCONTIN [Suspect]
     Active Substance: AMINOPHYLLINE
     Dosage: 400 MG, QD
     Route: 065
     Dates: start: 20100917
  61. PHYLLOCONTIN [Suspect]
     Active Substance: AMINOPHYLLINE
     Dosage: 400 MG, QD
     Route: 065
     Dates: start: 20100917
  62. PHYLLOCONTIN [Suspect]
     Active Substance: AMINOPHYLLINE
     Dosage: 400 MG, QD
     Route: 065
     Dates: start: 20100917
  63. PHYLLOCONTIN [Suspect]
     Active Substance: AMINOPHYLLINE
     Dosage: 400 MG, QD
     Route: 065
     Dates: start: 20100917
  64. CARBOCYSTEINE [Suspect]
     Active Substance: CARBOCYSTEINE
     Indication: Product used for unknown indication
     Dosage: 750 MG, QD
     Route: 065
     Dates: start: 20120917
  65. CARBOCYSTEINE [Suspect]
     Active Substance: CARBOCYSTEINE
     Indication: Rheumatoid arthritis
     Dosage: 750 MG, DAILY
     Route: 065
  66. CARBOCYSTEINE [Suspect]
     Active Substance: CARBOCYSTEINE
     Dosage: 750 MG, QD
     Route: 065
     Dates: start: 20100917
  67. CARBOCYSTEINE [Suspect]
     Active Substance: CARBOCYSTEINE
     Dosage: 750 MG, QD
     Route: 065
     Dates: start: 20100917
  68. CARBOCYSTEINE [Suspect]
     Active Substance: CARBOCYSTEINE
     Dosage: 750 MG, QD
     Route: 065
     Dates: start: 20210917
  69. CARBOCYSTEINE [Suspect]
     Active Substance: CARBOCYSTEINE
     Route: 065
  70. CARBOCYSTEINE [Suspect]
     Active Substance: CARBOCYSTEINE
     Dosage: 750 MG, QD
     Route: 065
  71. CARBOCYSTEINE [Suspect]
     Active Substance: CARBOCYSTEINE
     Dosage: 750 MG, QD
     Route: 065
  72. CARBOCYSTEINE [Suspect]
     Active Substance: CARBOCYSTEINE
     Dosage: 750 MG, QD
     Route: 065
  73. VENLAFAXINE HYDROCHLORIDE [Suspect]
     Active Substance: VENLAFAXINE HYDROCHLORIDE
     Indication: Depression
     Dosage: 225 MG, DAILY (XL, PROLONGED RELEASE)
     Route: 065
  74. VENLAFAXINE HYDROCHLORIDE [Suspect]
     Active Substance: VENLAFAXINE HYDROCHLORIDE
     Indication: Rheumatoid arthritis
     Dosage: 225 MG, DAILY (XL, PROLONGED RELEASE)
     Route: 065
  75. VENLAFAXINE HYDROCHLORIDE [Suspect]
     Active Substance: VENLAFAXINE HYDROCHLORIDE
     Dosage: 225 MG, DAILY (XL, PROLONGED RELEASE)
     Route: 065
  76. VENLAFAXINE HYDROCHLORIDE [Suspect]
     Active Substance: VENLAFAXINE HYDROCHLORIDE
     Dosage: 225 MG, ONCE PER DAY
     Route: 065
  77. VENLAFAXINE HYDROCHLORIDE [Suspect]
     Active Substance: VENLAFAXINE HYDROCHLORIDE
     Route: 065
  78. VENLAFAXINE HYDROCHLORIDE [Suspect]
     Active Substance: VENLAFAXINE HYDROCHLORIDE
     Dosage: 225 MG, ONCE PER DAY
     Route: 065
  79. VENLAFAXINE HYDROCHLORIDE [Suspect]
     Active Substance: VENLAFAXINE HYDROCHLORIDE
     Dosage: 225 MG, ONCE PER DAY
     Route: 065
  80. VENLAFAXINE HYDROCHLORIDE [Suspect]
     Active Substance: VENLAFAXINE HYDROCHLORIDE
     Dosage: 225 MG, ONCE PER DAY
     Route: 065
  81. VENLAFAXINE HYDROCHLORIDE [Suspect]
     Active Substance: VENLAFAXINE HYDROCHLORIDE
     Route: 065
  82. VENLAFAXINE HYDROCHLORIDE [Suspect]
     Active Substance: VENLAFAXINE HYDROCHLORIDE
     Dosage: 225 MG, ONCE PER DAY
     Route: 065
  83. VENLAFAXINE HYDROCHLORIDE [Suspect]
     Active Substance: VENLAFAXINE HYDROCHLORIDE
     Dosage: 225 MG, ONCE PER DAY
     Route: 065
  84. PROBIOTICS NOS [Suspect]
     Active Substance: PROBIOTICS NOS
     Indication: Abdominal discomfort
     Route: 065
  85. PROBIOTICS NOS [Suspect]
     Active Substance: PROBIOTICS NOS
     Indication: Depression
     Route: 065
  86. PROBIOTICS NOS [Suspect]
     Active Substance: PROBIOTICS NOS
     Route: 065
  87. PROBIOTICS NOS [Suspect]
     Active Substance: PROBIOTICS NOS
     Route: 065
  88. PROBIOTICS NOS [Suspect]
     Active Substance: PROBIOTICS NOS
     Route: 065
  89. PROBIOTICS NOS [Suspect]
     Active Substance: PROBIOTICS NOS
     Route: 065
  90. PROBIOTICS NOS [Suspect]
     Active Substance: PROBIOTICS NOS
     Route: 065
  91. SIMETHICONE (DIMETHICONE) [Suspect]
     Active Substance: DIMETHICONE
     Indication: Product used for unknown indication
     Route: 065
  92. ORUVAIL [Concomitant]
     Active Substance: KETOPROFEN
     Indication: Product used for unknown indication
     Route: 065
  93. ORUVAIL [Concomitant]
     Active Substance: KETOPROFEN
     Indication: Empty sella syndrome
     Route: 065
  94. ORUVAIL [Concomitant]
     Active Substance: KETOPROFEN
     Route: 065
  95. ORUVAIL [Concomitant]
     Active Substance: KETOPROFEN
     Route: 065
  96. ORUVAIL [Concomitant]
     Active Substance: KETOPROFEN
     Route: 065
  97. ORUVAIL [Concomitant]
     Active Substance: KETOPROFEN
     Route: 065
  98. ORUVAIL [Concomitant]
     Active Substance: KETOPROFEN
     Route: 065
  99. ORUVAIL [Concomitant]
     Active Substance: KETOPROFEN
     Route: 065
  100. ORUVAIL [Concomitant]
     Active Substance: KETOPROFEN
     Route: 065
  101. ORUVAIL [Concomitant]
     Active Substance: KETOPROFEN
     Route: 065
  102. ORUVAIL [Concomitant]
     Active Substance: KETOPROFEN
     Route: 065
  103. ORUVAIL [Concomitant]
     Active Substance: KETOPROFEN
     Route: 065
  104. ORUVAIL [Concomitant]
     Active Substance: KETOPROFEN
     Route: 065
  105. ORUVAIL [Concomitant]
     Active Substance: KETOPROFEN
     Route: 065
  106. ORUVAIL [Concomitant]
     Active Substance: KETOPROFEN
     Route: 065
  107. BENDROFLUMETHIAZIDE [Concomitant]
     Active Substance: BENDROFLUMETHIAZIDE
     Indication: Product used for unknown indication
     Route: 065
  108. BENDROFLUMETHIAZIDE [Concomitant]
     Active Substance: BENDROFLUMETHIAZIDE
     Indication: Pituitary tumour
     Route: 065
  109. BENDROFLUMETHIAZIDE [Concomitant]
     Active Substance: BENDROFLUMETHIAZIDE
     Indication: Depression
     Route: 065
  110. BENDROFLUMETHIAZIDE [Concomitant]
     Active Substance: BENDROFLUMETHIAZIDE
     Route: 065
  111. BENDROFLUMETHIAZIDE [Concomitant]
     Active Substance: BENDROFLUMETHIAZIDE
     Route: 065
  112. BENDROFLUMETHIAZIDE [Concomitant]
     Active Substance: BENDROFLUMETHIAZIDE
     Route: 065
  113. BENDROFLUMETHIAZIDE [Concomitant]
     Active Substance: BENDROFLUMETHIAZIDE
     Route: 065
  114. BENDROFLUMETHIAZIDE [Concomitant]
     Active Substance: BENDROFLUMETHIAZIDE
     Route: 065
  115. BENDROFLUMETHIAZIDE [Concomitant]
     Active Substance: BENDROFLUMETHIAZIDE
     Route: 065
  116. BENDROFLUMETHIAZIDE [Concomitant]
     Active Substance: BENDROFLUMETHIAZIDE
     Route: 065
  117. BENDROFLUMETHIAZIDE [Concomitant]
     Active Substance: BENDROFLUMETHIAZIDE
     Route: 065
  118. BENDROFLUMETHIAZIDE [Concomitant]
     Active Substance: BENDROFLUMETHIAZIDE
     Route: 065
  119. BENDROFLUMETHIAZIDE [Concomitant]
     Active Substance: BENDROFLUMETHIAZIDE
     Route: 065
  120. BENDROFLUMETHIAZIDE [Concomitant]
     Active Substance: BENDROFLUMETHIAZIDE
     Route: 065
  121. BENDROFLUMETHIAZIDE [Concomitant]
     Active Substance: BENDROFLUMETHIAZIDE
     Route: 065
  122. BENDROFLUMETHIAZIDE [Concomitant]
     Active Substance: BENDROFLUMETHIAZIDE
     Route: 065
  123. LEVOTHYROXINE [Concomitant]
     Active Substance: LEVOTHYROXINE
     Indication: Product used for unknown indication
     Route: 065
  124. LEVOTHYROXINE [Concomitant]
     Active Substance: LEVOTHYROXINE
     Indication: Abdominal discomfort
     Route: 016
  125. LEVOTHYROXINE [Concomitant]
     Active Substance: LEVOTHYROXINE
     Route: 016
  126. LEVOTHYROXINE [Concomitant]
     Active Substance: LEVOTHYROXINE
     Route: 016
  127. LEVOTHYROXINE [Concomitant]
     Active Substance: LEVOTHYROXINE
     Route: 016
  128. LEVOTHYROXINE [Concomitant]
     Active Substance: LEVOTHYROXINE
     Route: 016
  129. LEVOTHYROXINE [Concomitant]
     Active Substance: LEVOTHYROXINE
     Route: 016
  130. LEVOTHYROXINE [Concomitant]
     Active Substance: LEVOTHYROXINE
     Route: 016
  131. EZETIMIBE [Concomitant]
     Active Substance: EZETIMIBE
     Indication: Product used for unknown indication
     Route: 065
  132. EZETIMIBE [Concomitant]
     Active Substance: EZETIMIBE
     Route: 065
  133. EZETIMIBE [Concomitant]
     Active Substance: EZETIMIBE
     Dosage: 50 MG, QW  MYCLIC PEN
     Route: 065
     Dates: start: 20100917
  134. EZETIMIBE [Concomitant]
     Active Substance: EZETIMIBE
     Dosage: 50 MG, QW  MYCLIC PEN
     Route: 065
     Dates: start: 20100917
  135. EZETIMIBE [Concomitant]
     Active Substance: EZETIMIBE
     Route: 065
  136. EZETIMIBE [Concomitant]
     Active Substance: EZETIMIBE
     Route: 065
  137. CETIRIZINE [Concomitant]
     Active Substance: CETIRIZINE HYDROCHLORIDE
     Indication: Product used for unknown indication
     Route: 065
  138. CETIRIZINE [Concomitant]
     Active Substance: CETIRIZINE HYDROCHLORIDE
     Indication: Abdominal discomfort
     Route: 065
  139. CETIRIZINE [Concomitant]
     Active Substance: CETIRIZINE HYDROCHLORIDE
     Route: 065
  140. CETIRIZINE [Concomitant]
     Active Substance: CETIRIZINE HYDROCHLORIDE
     Route: 065
  141. CETIRIZINE [Concomitant]
     Active Substance: CETIRIZINE HYDROCHLORIDE
     Route: 065
  142. CETIRIZINE [Concomitant]
     Active Substance: CETIRIZINE HYDROCHLORIDE
     Route: 065
  143. CETIRIZINE [Concomitant]
     Active Substance: CETIRIZINE HYDROCHLORIDE
     Route: 065
  144. CETIRIZINE [Concomitant]
     Active Substance: CETIRIZINE HYDROCHLORIDE
     Route: 065
  145. THEOPHYLLINE [Concomitant]
     Active Substance: THEOPHYLLINE
     Indication: Abdominal discomfort
     Dosage: 750 MG, QD
     Route: 065
  146. THEOPHYLLINE [Concomitant]
     Active Substance: THEOPHYLLINE
     Indication: Depression
  147. DOXYCYCLINE [Concomitant]
     Active Substance: DOXYCYCLINE
     Indication: Pulmonary pain
     Route: 065
  148. DOXYCYCLINE [Concomitant]
     Active Substance: DOXYCYCLINE
     Route: 065
  149. DOXYCYCLINE [Concomitant]
     Active Substance: DOXYCYCLINE
     Route: 065
  150. CABERGOLINE [Concomitant]
     Active Substance: CABERGOLINE
     Indication: Product used for unknown indication
     Route: 065
  151. CABERGOLINE [Concomitant]
     Active Substance: CABERGOLINE
     Indication: Pituitary tumour
     Route: 065
  152. CABERGOLINE [Concomitant]
     Active Substance: CABERGOLINE
     Indication: Empty sella syndrome
     Route: 065
  153. CABERGOLINE [Concomitant]
     Active Substance: CABERGOLINE
     Route: 065
  154. CABERGOLINE [Concomitant]
     Active Substance: CABERGOLINE
     Route: 065
  155. CABERGOLINE [Concomitant]
     Active Substance: CABERGOLINE
     Route: 065
  156. CABERGOLINE [Concomitant]
     Active Substance: CABERGOLINE
     Route: 065
  157. CABERGOLINE [Concomitant]
     Active Substance: CABERGOLINE
     Route: 065
  158. CABERGOLINE [Concomitant]
     Active Substance: CABERGOLINE
     Route: 065
  159. CABERGOLINE [Concomitant]
     Active Substance: CABERGOLINE
     Route: 065
  160. CABERGOLINE [Concomitant]
     Active Substance: CABERGOLINE
     Route: 065
  161. CABERGOLINE [Concomitant]
     Active Substance: CABERGOLINE
     Route: 065
  162. CABERGOLINE [Concomitant]
     Active Substance: CABERGOLINE
     Route: 065
  163. CABERGOLINE [Concomitant]
     Active Substance: CABERGOLINE
     Route: 065
  164. CABERGOLINE [Concomitant]
     Active Substance: CABERGOLINE
     Route: 065
  165. CABERGOLINE [Concomitant]
     Active Substance: CABERGOLINE
     Route: 065
  166. CABERGOLINE [Concomitant]
     Active Substance: CABERGOLINE
     Route: 065
  167. CABERGOLINE [Concomitant]
     Active Substance: CABERGOLINE
     Route: 065
  168. FOLIC ACID [Concomitant]
     Active Substance: FOLIC ACID
     Indication: Product used for unknown indication
     Route: 065
  169. FOLIC ACID [Concomitant]
     Active Substance: FOLIC ACID
     Route: 065
  170. FOLIC ACID [Concomitant]
     Active Substance: FOLIC ACID
     Route: 065
  171. FOLIC ACID [Concomitant]
     Active Substance: FOLIC ACID
     Route: 065
  172. FOLIC ACID [Concomitant]
     Active Substance: FOLIC ACID
     Route: 065
  173. FOLIC ACID [Concomitant]
     Active Substance: FOLIC ACID
     Route: 065
  174. ACTIVATED CHARCOAL [Concomitant]
     Active Substance: ACTIVATED CHARCOAL
     Indication: Product used for unknown indication
     Route: 065
  175. ACTIVATED CHARCOAL [Concomitant]
     Active Substance: ACTIVATED CHARCOAL
     Dosage: 750 MG, QD
     Route: 065
  176. ACTIVATED CHARCOAL [Concomitant]
     Active Substance: ACTIVATED CHARCOAL
     Dosage: 750 MG, QD
     Route: 065
  177. ACTIVATED CHARCOAL [Concomitant]
     Active Substance: ACTIVATED CHARCOAL
     Dosage: 750 MG, QD
     Route: 065
  178. ACTIVATED CHARCOAL [Concomitant]
     Active Substance: ACTIVATED CHARCOAL
     Dosage: 750 MG, QD
     Route: 065
  179. ACTIVATED CHARCOAL [Concomitant]
     Active Substance: ACTIVATED CHARCOAL
     Dosage: 750 MG, QD
     Route: 065

REACTIONS (8)
  - Arthropathy [Unknown]
  - Rash [Not Recovered/Not Resolved]
  - Product dose omission issue [Unknown]
  - Intentional product misuse [Unknown]
  - Lower respiratory tract infection [Not Recovered/Not Resolved]
  - Pulmonary pain [Unknown]
  - Overdose [Unknown]
  - Off label use [Unknown]

NARRATIVE: CASE EVENT DATE: 20201001
